FAERS Safety Report 7384719-9 (Version None)
Quarter: 2011Q1

REPORT INFORMATION
  Report Type: 
  Country: None (occurrence: None)
  Receive Date: 20110330
  Receipt Date: 20110324
  Transmission Date: 20110831
  Serious: Yes (Hospitalization, Other)
  Sender: FDA-Public Use
  Company Number: PHEH2006US11913

PATIENT
  Sex: Female
  Weight: 70.295 kg

DRUGS (43)
  1. GLIPIZIDE [Concomitant]
  2. ARANESP [Concomitant]
  3. ACETAMINOPHEN [Concomitant]
     Dosage: 650 MG, UNK
  4. CLARITIN [Concomitant]
  5. AVANDIA [Concomitant]
  6. ZOMETA [Suspect]
  7. NEURONTIN [Concomitant]
  8. MSIR [Concomitant]
     Dosage: 30 MG, UNK
  9. METHADONE [Concomitant]
  10. NITRO-BID [Concomitant]
  11. HYDROCODONE BITARTRATE [Concomitant]
     Dosage: UNK
  12. PLAVIX [Concomitant]
  13. SPIRONOLACTONE [Concomitant]
  14. COREG [Concomitant]
  15. ALPHAGAN P [Concomitant]
  16. ENALAPRIL [Concomitant]
  17. BYETTA [Concomitant]
  18. DIAMOX SRC [Concomitant]
  19. MOXIFLOXACIN [Concomitant]
     Dosage: 1GTT
  20. LISINOPRIL [Concomitant]
  21. COMPAZINE [Concomitant]
     Dosage: 10 MG, UNK
  22. OXYCONTIN [Concomitant]
     Dosage: UNK
  23. TAXOL [Concomitant]
  24. GABAPENTIN [Concomitant]
  25. AREDIA [Suspect]
  26. DILAUDID [Concomitant]
  27. KLOR-CON [Concomitant]
  28. AMARYL [Concomitant]
  29. COMBIVENT                               /GFR/ [Concomitant]
  30. INSULIN [Concomitant]
  31. TAXOTERE [Concomitant]
  32. MORPHINE [Concomitant]
     Dosage: 1 MG, UNK
  33. MORPHINE [Concomitant]
     Dosage: 5 MG/ML, UNK
  34. LASIX [Concomitant]
  35. LORATADINE [Concomitant]
  36. XALATAN [Concomitant]
     Dosage: UNK
  37. ALDACTONE [Concomitant]
  38. ACTOS [Concomitant]
  39. EPINEPHRINE [Concomitant]
  40. VANCOMYCIN [Concomitant]
  41. ECONOPRED [Concomitant]
     Dosage: 1%, 1GTT
  42. MORPHINE [Concomitant]
     Dosage: 6 MG, UNK
  43. PERCOCET [Concomitant]

REACTIONS (100)
  - TOOTHACHE [None]
  - DIVERTICULUM INTESTINAL [None]
  - TRACHEAL DEVIATION [None]
  - DYSPNOEA [None]
  - DEPRESSED MOOD [None]
  - GALLBLADDER DISORDER [None]
  - MUSCULOSKELETAL CHEST PAIN [None]
  - PIGMENTATION DISORDER [None]
  - HYPERKALAEMIA [None]
  - NAUSEA [None]
  - VITAMIN D DEFICIENCY [None]
  - GAIT DISTURBANCE [None]
  - AZOTAEMIA [None]
  - EMOTIONAL DISTRESS [None]
  - PERIPHERAL VASCULAR DISORDER [None]
  - VASODILATATION [None]
  - CAROTID BRUIT [None]
  - CHOLELITHIASIS [None]
  - ABDOMINAL PAIN UPPER [None]
  - CONTUSION [None]
  - STAPHYLOMA [None]
  - DIARRHOEA [None]
  - ASTHENIA [None]
  - BLADDER DISORDER [None]
  - HYPERLIPIDAEMIA [None]
  - HYPOVOLAEMIA [None]
  - DECREASED INTEREST [None]
  - PULMONARY MASS [None]
  - LIGAMENT SPRAIN [None]
  - SYNCOPE [None]
  - BRONCHITIS CHRONIC [None]
  - THYROID NEOPLASM [None]
  - HYPOKALAEMIA [None]
  - DIZZINESS [None]
  - DEFORMITY [None]
  - PLEURAL EFFUSION [None]
  - HEPATIC LESION [None]
  - CHOLECYSTITIS [None]
  - HYPOAESTHESIA [None]
  - SKIN ATROPHY [None]
  - ORAL DISORDER [None]
  - SPINAL COLUMN INJURY [None]
  - DEHYDRATION [None]
  - VOMITING [None]
  - VARICOSE VEIN [None]
  - ONYCHOMYCOSIS [None]
  - VISUAL ACUITY REDUCED [None]
  - THROMBOSIS [None]
  - RENAL DISORDER [None]
  - DIABETIC NEUROPATHY [None]
  - FATIGUE [None]
  - ALPHA HAEMOLYTIC STREPTOCOCCAL INFECTION [None]
  - MUCOSAL INFLAMMATION [None]
  - RETINAL HAEMORRHAGE [None]
  - BLOOD IRON DECREASED [None]
  - RENAL FAILURE ACUTE [None]
  - URINARY TRACT INFECTION [None]
  - MYALGIA [None]
  - ABDOMINAL PAIN [None]
  - GASTROOESOPHAGEAL REFLUX DISEASE [None]
  - ANXIETY [None]
  - LUNG NEOPLASM [None]
  - GOITRE [None]
  - LUNG INFILTRATION [None]
  - PNEUMONIA [None]
  - ATELECTASIS [None]
  - HEPATITIS [None]
  - BACK PAIN [None]
  - HYPERKERATOSIS [None]
  - ERYTHEMA [None]
  - LIMB INJURY [None]
  - VITREOUS FLOATERS [None]
  - NEPHROGENIC ANAEMIA [None]
  - SERUM FERRITIN INCREASED [None]
  - DIABETIC RETINOPATHY [None]
  - OEDEMA [None]
  - PAIN [None]
  - HYPOPHAGIA [None]
  - GENERAL PHYSICAL HEALTH DETERIORATION [None]
  - ONYCHOCLASIS [None]
  - VISUAL FIELD DEFECT [None]
  - LUNG CONSOLIDATION [None]
  - SUPRAVENTRICULAR EXTRASYSTOLES [None]
  - VERTEBRAL ARTERY OCCLUSION [None]
  - CHEST PAIN [None]
  - OSTEONECROSIS OF JAW [None]
  - OSTEOMYELITIS [None]
  - LIFE EXPECTANCY SHORTENED [None]
  - GLAUCOMA [None]
  - BONE DENSITY DECREASED [None]
  - ANAEMIA [None]
  - EXOSTOSIS [None]
  - MUCOSAL ULCERATION [None]
  - FALL [None]
  - RIB FRACTURE [None]
  - PHOTOPSIA [None]
  - CARDIAC FAILURE CONGESTIVE [None]
  - OEDEMA PERIPHERAL [None]
  - FAECALOMA [None]
  - CONSTIPATION [None]
